FAERS Safety Report 16952048 (Version 1)
Quarter: 2019Q4

REPORT INFORMATION
  Report Type: Spontaneous
  Country: US (occurrence: US)
  Receive Date: 20190903
  Receipt Date: 20190903
  Transmission Date: 20200122
  Serious: No
  Sender: FDA-Public Use
  Company Number: None

PATIENT
  Age: 81 Year
  Sex: Male
  Weight: 86 kg

DRUGS (1)
  1. FLUOROURACIL. [Suspect]
     Active Substance: FLUOROURACIL
     Dates: start: 20190819, end: 20190823

REACTIONS (6)
  - Mucosal inflammation [None]
  - Dihydropyrimidine dehydrogenase deficiency [None]
  - Diarrhoea [None]
  - Thrombocytopenia [None]
  - Pain [None]
  - Gastrointestinal toxicity [None]

NARRATIVE: CASE EVENT DATE: 20190828
